FAERS Safety Report 8851392 (Version 2)
Quarter: 2012Q4

REPORT INFORMATION
  Report Type: 
  Country: NZ (occurrence: NZ)
  Receive Date: 20121022
  Receipt Date: 20121105
  Transmission Date: 20130627
  Serious: Yes (Death)
  Sender: FDA-Public Use
  Company Number: NZ-ROCHE-1145947

PATIENT

DRUGS (1)
  1. ALTEPLASE [Suspect]
     Indication: ISCHAEMIC STROKE
     Route: 042

REACTIONS (1)
  - Haemorrhage intracranial [Fatal]
